FAERS Safety Report 11025391 (Version 1)
Quarter: 2015Q2

REPORT INFORMATION
  Report Type: Spontaneous
  Country: FR (occurrence: None)
  Receive Date: 20150410
  Receipt Date: 20150410
  Transmission Date: 20150821
  Serious: Yes (Other)
  Sender: FDA-Public Use
  Company Number: UCM201503-000215

PATIENT
  Age: 15 Year

DRUGS (2)
  1. BETAXOLOL [Suspect]
     Active Substance: BETAXOLOL
  2. CLONIDINE HCL [Suspect]
     Active Substance: CLONIDINE HYDROCHLORIDE

REACTIONS (7)
  - Overdose [None]
  - Hypertensive crisis [None]
  - Toxicity to various agents [None]
  - Somnolence [None]
  - Bradycardia [None]
  - Confusional state [None]
  - Miosis [None]
